FAERS Safety Report 14240275 (Version 3)
Quarter: 2018Q2

REPORT INFORMATION
  Report Type: Spontaneous
  Country: US (occurrence: US)
  Receive Date: 20171130
  Receipt Date: 20180423
  Transmission Date: 20180711
  Serious: Yes (Hospitalization, Other)
  Sender: FDA-Public Use
  Company Number: US-DSJP-DSU-2017-138464

PATIENT

DRUGS (2)
  1. AZOR [Suspect]
     Active Substance: AMLODIPINE BESYLATE\OLMESARTAN MEDOXOMIL
     Indication: PRODUCT USED FOR UNKNOWN INDICATION
     Dosage: 5/40MG, QD
     Route: 048
     Dates: start: 20111011, end: 20160714
  2. BENICAR [Suspect]
     Active Substance: OLMESARTAN MEDOXOMIL
     Indication: PRODUCT USED FOR UNKNOWN INDICATION
     Dosage: 40 MG, UNK

REACTIONS (15)
  - Hiatus hernia [Unknown]
  - Sprue-like enteropathy [Recovering/Resolving]
  - Impaired gastric emptying [Unknown]
  - Diverticulum intestinal [Unknown]
  - Hepatic steatosis [Unknown]
  - Gastrooesophageal reflux disease [Unknown]
  - Duodenal ulcer [Unknown]
  - Diverticulitis [Unknown]
  - Haemorrhoids [Unknown]
  - Umbilical hernia [Recovered/Resolved]
  - Rectal polyp [Unknown]
  - Large intestine polyp [Recovered/Resolved]
  - Acute kidney injury [Recovered/Resolved]
  - Dumping syndrome [Unknown]
  - Irritable bowel syndrome [Unknown]

NARRATIVE: CASE EVENT DATE: 20111011
